FAERS Safety Report 6165787-9 (Version None)
Quarter: 2009Q2

REPORT INFORMATION
  Report Type: 
  Country: None (occurrence: None)
  Receive Date: 20090423
  Receipt Date: 20090318
  Transmission Date: 20091009
  Serious: Yes (Other)
  Sender: FDA-Public Use
  Company Number: FR-BAXTER-2009BH004526

PATIENT
  Age: 25 Year
  Sex: Female

DRUGS (7)
  1. IFOSFAMIDE [Suspect]
     Indication: NEOPLASM MALIGNANT
     Route: 042
  2. CYCLOPHOSPHAMIDE [Suspect]
     Indication: NEOPLASM MALIGNANT
     Route: 042
  3. DOXORUBICIN HCL [Suspect]
     Indication: NEOPLASM MALIGNANT
     Route: 042
  4. CARBOPLATIN [Suspect]
     Indication: NEOPLASM MALIGNANT
     Route: 042
  5. BUSULFAN [Suspect]
     Indication: NEOPLASM MALIGNANT
     Route: 042
  6. MELPHALAN [Suspect]
     Indication: NEOPLASM MALIGNANT
     Route: 042
  7. ETOPOSIDE [Suspect]
     Indication: NEOPLASM MALIGNANT
     Route: 042

REACTIONS (1)
  - ACUTE PROMYELOCYTIC LEUKAEMIA [None]
